FAERS Safety Report 16761565 (Version 2)
Quarter: 2019Q3

REPORT INFORMATION
  Report Type: Report from Study
  Country: AR (occurrence: AR)
  Receive Date: 20190830
  Receipt Date: 20190919
  Transmission Date: 20191005
  Serious: Yes (Other)
  Sender: FDA-Public Use
  Company Number: PHHY2014AR083937

PATIENT
  Sex: Female
  Weight: 102 kg

DRUGS (2)
  1. DIOVAN [Suspect]
     Active Substance: VALSARTAN
     Indication: CARDIAC DISORDER
  2. DIOVAN [Suspect]
     Active Substance: VALSARTAN
     Indication: HYPERTENSION
     Dosage: 2 DF, QD
     Route: 048
     Dates: start: 2004

REACTIONS (17)
  - Fall [Unknown]
  - Pneumonia [Recovered/Resolved]
  - Osteoarthritis [Not Recovered/Not Resolved]
  - Depression [Unknown]
  - Intervertebral disc protrusion [Recovering/Resolving]
  - Cerebrovascular accident [Recovered/Resolved with Sequelae]
  - Arthropathy [Not Recovered/Not Resolved]
  - Weight increased [Unknown]
  - Incontinence [Recovering/Resolving]
  - Arthralgia [Not Recovered/Not Resolved]
  - Central nervous system lesion [Not Recovered/Not Resolved]
  - Joint injury [Unknown]
  - Diverticulum intestinal [Unknown]
  - Memory impairment [Unknown]
  - Gait disturbance [Recovering/Resolving]
  - Diverticulum [Recovering/Resolving]
  - Haemorrhoids [Unknown]

NARRATIVE: CASE EVENT DATE: 2004
